FAERS Safety Report 7070041-7 (Version None)
Quarter: 2010Q4

REPORT INFORMATION
  Report Type: 
  Country: None (occurrence: None)
  Receive Date: 20101028
  Receipt Date: 20100817
  Transmission Date: 20110411
  Serious: No
  Sender: FDA-Public Use
  Company Number: US-WYE-H16977110

PATIENT

DRUGS (2)
  1. PANTOPRAZOLE [Suspect]
     Dosage: UNSPECIFIED
  2. IMMUNE GLOBULIN (HUMAN) [Suspect]
     Dosage: UNSPECIFIED

REACTIONS (2)
  - BLOOD SODIUM DECREASED [None]
  - PLATELET COUNT DECREASED [None]
